FAERS Safety Report 5443506-9 (Version None)
Quarter: 2007Q3

REPORT INFORMATION
  Report Type: 
  Country: None (occurrence: None)
  Receive Date: 20070905
  Receipt Date: 20070827
  Transmission Date: 20080115
  Serious: Yes (Hospitalization)
  Sender: FDA-Public Use
  Company Number: US-ELI_LILLY_AND_COMPANY-US200708007111

PATIENT
  Age: 82 Year
  Sex: Female

DRUGS (10)
  1. HUMALOG MIX 50/50 [Suspect]
     Indication: DIABETES MELLITUS
     Dates: start: 20060101
  2. ZOCOR [Concomitant]
  3. METOPROLOL SUCCINATE [Concomitant]
     Dosage: 50 MG, UNK
  4. SYNTHROID [Concomitant]
     Dosage: 88 UNK, UNK
  5. ASPIRIN [Concomitant]
     Dosage: 81 MG, UNK
  6. PLAVIX [Concomitant]
     Dosage: 75 MG, UNK
  7. ENALAPRIL MALEATE [Concomitant]
     Dosage: 20 MG, UNK
  8. CALCIUM [Concomitant]
  9. MULTI-VITAMIN [Concomitant]
  10. KLOR-CON [Concomitant]
     Dosage: 10 MEQ, UNK

REACTIONS (3)
  - BLOOD GLUCOSE INCREASED [None]
  - DIZZINESS [None]
  - INJECTION SITE HAEMORRHAGE [None]
